FAERS Safety Report 12355678 (Version 1)
Quarter: 2016Q2

REPORT INFORMATION
  Report Type: Spontaneous
  Country: US (occurrence: None)
  Receive Date: 20160510
  Receipt Date: 20160510
  Transmission Date: 20160815
  Serious: No
  Sender: FDA-Public Use
  Company Number: None

PATIENT
  Age: 66 Year
  Sex: Female
  Weight: 54.89 kg

DRUGS (9)
  1. EPIPEN [Concomitant]
     Active Substance: EPINEPHRINE
  2. METAMUCIL [Concomitant]
     Active Substance: PLANTAGO SEED
  3. TRIAMTERENE AND HYDROCHLOROTHIAZIDE [Concomitant]
     Active Substance: HYDROCHLOROTHIAZIDE\TRIAMTERENE
  4. VOLTAREN [Concomitant]
     Active Substance: DICLOFENAC SODIUM
  5. FAMOTIDINE. [Concomitant]
     Active Substance: FAMOTIDINE
  6. IMATINIB MESYLATE 100 MG, 100 MG [Suspect]
     Active Substance: IMATINIB MESYLATE
     Indication: MASTOCYTOSIS
     Route: 048
     Dates: start: 20160220, end: 20160401
  7. LORATADINE. [Concomitant]
     Active Substance: LORATADINE
  8. GLEEVEC [Concomitant]
     Active Substance: IMATINIB MESYLATE
  9. AMBIEN [Concomitant]
     Active Substance: ZOLPIDEM TARTRATE

REACTIONS (20)
  - Insomnia [None]
  - Pain in extremity [None]
  - Fall [None]
  - Tachycardia [None]
  - Mast cell activation syndrome [None]
  - Fatigue [None]
  - Diarrhoea [None]
  - Impaired healing [None]
  - Oedema peripheral [None]
  - Contusion [None]
  - Gait disturbance [None]
  - Product substitution issue [None]
  - Dyspnoea [None]
  - Rash pruritic [None]
  - Balance disorder [None]
  - No therapeutic response [None]
  - Hypertension [None]
  - Night sweats [None]
  - Nausea [None]
  - Myalgia [None]

NARRATIVE: CASE EVENT DATE: 20160401
